FAERS Safety Report 12894492 (Version 1)
Quarter: 2016Q4

REPORT INFORMATION
  Report Type: Spontaneous
  Country: JP (occurrence: JP)
  Receive Date: 20161028
  Receipt Date: 20161028
  Transmission Date: 20170207
  Serious: Yes (Life-Threatening)
  Sender: FDA-Public Use
  Company Number: JP-DSJP-DSJ-2016-130808

PATIENT

DRUGS (10)
  1. FLUITRAN [Concomitant]
     Active Substance: TRICHLORMETHIAZIDE
     Dosage: 1 MG, QD
     Route: 048
     Dates: end: 20151215
  2. MICARDIS [Concomitant]
     Active Substance: TELMISARTAN
     Dosage: 40 MG, BID
     Route: 048
     Dates: end: 20151215
  3. TRAZENTA [Concomitant]
     Active Substance: LINAGLIPTIN
     Dosage: 5 MG, QD
     Route: 048
     Dates: end: 20151215
  4. LIVALO [Concomitant]
     Active Substance: PITAVASTATIN CALCIUM
     Dosage: 2 MG, QD
     Route: 048
     Dates: end: 20151215
  5. CEFAZOLIN                          /00288502/ [Concomitant]
     Active Substance: CEFAZOLIN SODIUM
     Dosage: 1 G, TID
     Route: 041
     Dates: start: 20151211
  6. LACTEC                             /00490001/ [Concomitant]
     Dosage: 500 ML, QD
     Route: 041
     Dates: start: 20151208
  7. LIXIANA TABLETS 15MG [Suspect]
     Active Substance: EDOXABAN TOSILATE MONOHYDRATE
     Indication: HIP ARTHROPLASTY
     Dosage: 15 MG, QD
     Route: 048
     Dates: start: 20151214, end: 20151214
  8. COCARL [Concomitant]
     Active Substance: ACETAMINOPHEN
     Dosage: 400 MG, TID
     Route: 048
     Dates: end: 20151215
  9. AMLODIPINE                         /00972402/ [Concomitant]
     Active Substance: AMLODIPINE BESYLATE
     Dosage: 10 MG, QD
     Route: 048
     Dates: end: 20151215
  10. CELOOP [Concomitant]
     Dosage: 50 MG, TID
     Route: 048
     Dates: end: 20151215

REACTIONS (3)
  - Blood pressure decreased [Recovered/Resolved]
  - Haematemesis [Recovered/Resolved]
  - Underdose [Unknown]

NARRATIVE: CASE EVENT DATE: 20151214
